FAERS Safety Report 22274238 (Version 1)
Quarter: 2023Q2

REPORT INFORMATION
  Report Type: Spontaneous
  Country: US (occurrence: US)
  Receive Date: 20230502
  Receipt Date: 20230502
  Transmission Date: 20230722
  Serious: Yes (Hospitalization)
  Sender: FDA-Public Use
  Company Number: US-AMNEAL PHARMACEUTICALS-2022-AMRX-01738

PATIENT
  Sex: Male
  Weight: 11.791 kg

DRUGS (3)
  1. VIGABATRIN [Suspect]
     Active Substance: VIGABATRIN
     Indication: Tuberous sclerosis complex
     Dosage: 90 ML, BID
     Route: 048
  2. VIGABATRIN [Suspect]
     Active Substance: VIGABATRIN
     Indication: Epilepsy
     Dosage: 19 ML, BID
     Route: 048
  3. VIGABATRIN [Suspect]
     Active Substance: VIGABATRIN
     Indication: Disease susceptibility

REACTIONS (3)
  - Rash [Not Recovered/Not Resolved]
  - Vomiting [Unknown]
  - Incorrect product administration duration [Unknown]
